FAERS Safety Report 13578878 (Version 1)
Quarter: 2017Q2

REPORT INFORMATION
  Report Type: Spontaneous
  Country: US (occurrence: US)
  Receive Date: 20170524
  Receipt Date: 20170524
  Transmission Date: 20170830
  Serious: Yes (Other)
  Sender: FDA-Public Use
  Company Number: None

PATIENT
  Sex: Female
  Weight: 93.98 kg

DRUGS (3)
  1. GABAPENTIN 300MG, ORAL [Suspect]
     Active Substance: GABAPENTIN
     Indication: PARAESTHESIA
     Dosage: 300 MG X 3 DOSES, ORAL
     Route: 048
  2. GABAPENTIN 300MG, ORAL [Suspect]
     Active Substance: GABAPENTIN
     Indication: HYPOAESTHESIA
     Dosage: 300 MG X 1 DOSE, ORAL
     Route: 048
  3. GABAPENTIN 300MG, ORAL [Suspect]
     Active Substance: GABAPENTIN
     Indication: PAIN
     Dosage: 300 MG X 1 DOSE, ORAL
     Route: 048

REACTIONS (3)
  - Rash [None]
  - Paraesthesia oral [None]
  - Similar reaction on previous exposure to drug [None]

NARRATIVE: CASE EVENT DATE: 2007
